FAERS Safety Report 17855949 (Version 1)
Quarter: 2020Q2

REPORT INFORMATION
  Report Type: Spontaneous
  Country: US (occurrence: US)
  Receive Date: 20200603
  Receipt Date: 20200603
  Transmission Date: 20200714
  Serious: Yes (Other)
  Sender: FDA-Public Use
  Company Number: US-CATALYST PHARMACEUTICALS, INC-2020CAT00201

PATIENT
  Age: 41 Year
  Sex: Female
  Weight: 77 kg

DRUGS (2)
  1. FIRDAPSE [Suspect]
     Active Substance: AMIFAMPRIDINE
     Indication: MYASTHENIC SYNDROME
     Dosage: 10 MG (TOTAL DOSE OF 7 PILLS PER DAY)
     Route: 048
     Dates: start: 2019, end: 202005
  2. FIRDAPSE [Suspect]
     Active Substance: AMIFAMPRIDINE
     Dosage: 20 MG (TOTAL DOSE OF 7 PILLS PER DAY)
     Route: 048
     Dates: start: 2019, end: 202005

REACTIONS (6)
  - Fracture [Unknown]
  - Drug ineffective [Recovered/Resolved]
  - Accidental exposure to product [Recovered/Resolved]
  - Tremor [Recovering/Resolving]
  - Fall [Recovered/Resolved]
  - Asthenia [Recovering/Resolving]

NARRATIVE: CASE EVENT DATE: 20200514
